FAERS Safety Report 25337033 (Version 1)
Quarter: 2025Q2

REPORT INFORMATION
  Report Type: Spontaneous
  Country: CA (occurrence: CA)
  Receive Date: 20250520
  Receipt Date: 20250520
  Transmission Date: 20250717
  Serious: Yes (Hospitalization, Other)
  Sender: SANDOZ
  Company Number: CA-SANDOZ-SDZ2025CA034432

PATIENT
  Age: 26 Year
  Sex: Female

DRUGS (1)
  1. SOMATROPIN [Suspect]
     Active Substance: SOMATROPIN
     Indication: Prader-Willi syndrome
     Dosage: 1 MG, QD(EVERY 1 DAYS)
     Route: 058

REACTIONS (2)
  - Thrombosis [Not Recovered/Not Resolved]
  - Ankle fracture [Not Recovered/Not Resolved]
